FAERS Safety Report 9695904 (Version 5)
Quarter: 2015Q3

REPORT INFORMATION
  Report Type: Spontaneous
  Country: US (occurrence: US)
  Receive Date: 20131119
  Receipt Date: 20150820
  Transmission Date: 20151125
  Serious: Yes (Hospitalization, Other)
  Sender: FDA-Public Use
  Company Number: US-BAYER-2013-137708

PATIENT
  Age: 33 Year
  Sex: Female
  Weight: 59 kg

DRUGS (6)
  1. IMITREX [Concomitant]
     Active Substance: SUMATRIPTAN\SUMATRIPTAN SUCCINATE
     Indication: MIGRAINE
     Dosage: UNK
     Dates: start: 2003, end: 2013
  2. TOPAMAX [Concomitant]
     Active Substance: TOPIRAMATE
     Indication: MIGRAINE
     Dosage: UNK
  3. DOSTINEX [Concomitant]
     Active Substance: CABERGOLINE
     Dosage: UNK
     Dates: start: 20120524, end: 20120607
  4. MIRENA [Suspect]
     Active Substance: LEVONORGESTREL
     Indication: CONTRACEPTION
     Dosage: 20 MCG/24HR, CONT
     Route: 015
     Dates: start: 20070529, end: 20120523
  5. FIORICET [Concomitant]
     Active Substance: ACETAMINOPHEN\BUTALBITAL\CAFFEINE
     Indication: MIGRAINE
     Dosage: UNK
     Dates: start: 2003, end: 2013
  6. KEFLEX [Concomitant]
     Active Substance: CEPHALEXIN
     Dosage: UNK
     Dates: start: 1997

REACTIONS (9)
  - Abdominal pain [Recovered/Resolved]
  - Injury [None]
  - Premature labour [None]
  - Uterine perforation [None]
  - Device issue [None]
  - Drug ineffective [None]
  - Emotional distress [None]
  - Pregnancy with contraceptive device [Recovered/Resolved]
  - Pain [None]

NARRATIVE: CASE EVENT DATE: 20111022
